FAERS Safety Report 7070051-X (Version None)
Quarter: 2010Q4

REPORT INFORMATION
  Report Type: 
  Country: None (occurrence: None)
  Receive Date: 20101028
  Receipt Date: 20101011
  Transmission Date: 20110411
  Serious: No
  Sender: FDA-Public Use
  Company Number: US-WYE-H17065610

PATIENT
  Age: 69 Year
  Sex: Female
  Weight: 72.64 kg

DRUGS (4)
  1. ADVIL [Suspect]
     Indication: MUSCULOSKELETAL PAIN
     Dosage: 800 MG EVERY
     Route: 048
     Dates: start: 20100401, end: 20100401
  2. LISINOPRIL [Concomitant]
  3. TOPROL-XL [Concomitant]
  4. LIPITOR [Concomitant]

REACTIONS (1)
  - DRUG INEFFECTIVE [None]
